FAERS Safety Report 12382821 (Version 1)
Quarter: 2016Q2

REPORT INFORMATION
  Report Type: Report from Study
  Country: US (occurrence: US)
  Receive Date: 20160518
  Receipt Date: 20160518
  Transmission Date: 20160815
  Serious: Yes (Other)
  Sender: FDA-Public Use
  Company Number: US-GILEAD-2016-0214023

PATIENT
  Age: 61 Year
  Sex: Male

DRUGS (2)
  1. SOFOSBUVIR [Suspect]
     Active Substance: SOFOSBUVIR
     Indication: CHRONIC HEPATITIS C
     Dosage: 1 DF, QD
     Route: 048
     Dates: start: 20160215
  2. DAKLINZA [Concomitant]
     Active Substance: DACLATASVIR
     Indication: CHRONIC HEPATITIS C
     Route: 065

REACTIONS (6)
  - Otorrhoea [Unknown]
  - Diarrhoea [Unknown]
  - Malaise [Unknown]
  - Retinal detachment [Unknown]
  - Abnormal faeces [Unknown]
  - Faeces discoloured [Unknown]
